FAERS Safety Report 20644097 (Version 1)
Quarter: 2022Q1

REPORT INFORMATION
  Report Type: Spontaneous
  Country: US (occurrence: US)
  Receive Date: 20220328
  Receipt Date: 20220328
  Transmission Date: 20220423
  Serious: Yes (Other)
  Sender: FDA-Public Use
  Company Number: US-BRISTOL-MYERS SQUIBB COMPANY-USA-20220304802

PATIENT
  Age: 74 Year
  Sex: Female
  Weight: 108 kg

DRUGS (1)
  1. REVLIMID [Suspect]
     Active Substance: LENALIDOMIDE
     Indication: Myelodysplastic syndrome
     Dosage: REVLIMID 2.5 MG ORAL,21 DAYS ON 7 DAYS OFF
     Route: 048
     Dates: start: 20200915

REACTIONS (4)
  - Arthralgia [Unknown]
  - Sciatica [Unknown]
  - Myelodysplastic syndrome [Unknown]
  - Full blood count abnormal [Unknown]

NARRATIVE: CASE EVENT DATE: 20220307
